FAERS Safety Report 10035453 (Version 1)
Quarter: 2014Q1

REPORT INFORMATION
  Report Type: Spontaneous
  Country: US (occurrence: US)
  Receive Date: 20140325
  Receipt Date: 20140325
  Transmission Date: 20141002
  Serious: No
  Sender: FDA-Public Use
  Company Number: US-PFIZER INC-2014084173

PATIENT
  Age: 71 Year
  Sex: Female
  Weight: 80.73 kg

DRUGS (3)
  1. CELEBREX [Suspect]
     Indication: ARTHRITIS
     Dosage: 200 MG, 1X/DAY
  2. CELEBREX [Suspect]
     Dosage: 200 MG, AS NEEDED
  3. VOLTAREN [Concomitant]
     Indication: PAIN
     Dosage: UNK

REACTIONS (4)
  - Intentional drug misuse [Unknown]
  - Screaming [Unknown]
  - Aspartate aminotransferase decreased [Unknown]
  - Alanine aminotransferase increased [Unknown]
